FAERS Safety Report 9616238 (Version 4)
Quarter: 2013Q4

REPORT INFORMATION
  Report Type: Spontaneous
  Country: AR (occurrence: AR)
  Receive Date: 20131011
  Receipt Date: 20131223
  Transmission Date: 20140711
  Serious: Yes (Other)
  Sender: FDA-Public Use
  Company Number: AR-PFIZER INC-2013279570

PATIENT
  Age: 61 Year
  Sex: Female

DRUGS (1)
  1. SOMAVERT [Suspect]
     Indication: ACROMEGALY
     Dosage: 10 MG, 1X/DAY
     Route: 058
     Dates: start: 20090701

REACTIONS (11)
  - Cholelithiasis [Not Recovered/Not Resolved]
  - Intestinal polyp [Recovered/Resolved]
  - Anaemia [Not Recovered/Not Resolved]
  - Pharyngeal polyp [Recovered/Resolved]
  - Nasal polyps [Not Recovered/Not Resolved]
  - Vomiting [Not Recovered/Not Resolved]
  - Diverticulum [Recovering/Resolving]
  - Pain [Recovering/Resolving]
  - Dizziness [Not Recovered/Not Resolved]
  - Nausea [Unknown]
  - Headache [Unknown]
